FAERS Safety Report 10198831 (Version 1)
Quarter: 2014Q2

REPORT INFORMATION
  Report Type: Other
  Country: GB (occurrence: GB)
  Receive Date: 20140527
  Receipt Date: 20140527
  Transmission Date: 20141212
  Serious: Yes (Other)
  Sender: FDA-Public Use
  Company Number: GB-NAPPMUNDI-GBR-2014-0018427

PATIENT
  Age: 18 Year
  Sex: Male

DRUGS (8)
  1. MORPHINE SULFATE [Suspect]
     Indication: PROCEDURAL PAIN
     Dosage: 60 MG, UNK
     Route: 048
  2. MORPHINE SULFATE [Suspect]
     Indication: PREOPERATIVE CARE
     Dosage: 15 MG, UNK
     Route: 048
  3. MORPHINE SULFATE [Suspect]
     Dosage: 10 MG, UNK
     Route: 048
  4. MORPHINE [Suspect]
     Dosage: 3 MG, UNK
     Route: 042
  5. TRAMADOL HCL [Suspect]
     Indication: PROCEDURAL PAIN
     Dosage: 100 MG, PRN
  6. TRAMADOL HCL [Suspect]
     Dosage: 100 MG, UNK
  7. CODEINE [Suspect]
     Indication: PAIN
     Dosage: 30 MG, QID
  8. HYDROCORTISONE /00028602/ [Suspect]
     Indication: HYPOPITUITARISM

REACTIONS (1)
  - Adrenal insufficiency [Recovered/Resolved]
